FAERS Safety Report 5144572-0 (Version None)
Quarter: 2006Q4

REPORT INFORMATION
  Report Type: 
  Country: None (occurrence: None)
  Receive Date: 20061031
  Receipt Date: 20061019
  Transmission Date: 20070319
  Serious: Yes (Hospitalization, Other)
  Sender: FDA-Public Use
  Company Number: 2006059736

PATIENT
  Age: 74 Year
  Sex: Male
  Weight: 83 kg

DRUGS (13)
  1. SUTENT [Suspect]
     Indication: RENAL CELL CARCINOMA STAGE UNSPECIFIED
     Dosage: 50 MG (50 MG, 1 IN 1 D), ORAL
     Route: 048
     Dates: start: 20060209, end: 20060419
  2. TAMSULOSIN HCL [Concomitant]
  3. AMARYL [Concomitant]
  4. ACTOS [Concomitant]
  5. FLORINEF [Concomitant]
  6. PROTONIX [Concomitant]
  7. MEGACE [Concomitant]
  8. HYDROCORTISONE [Concomitant]
  9. ZOLOFT [Concomitant]
  10. DIAZEPAM [Concomitant]
  11. COLACE              (DOCUSATE SODIUM) [Concomitant]
  12. MAGNESIUM OXIDE                (MAGNESIUM OXIDE) [Concomitant]
  13. ANTIBIOTICS              (ANTIBIOTICS) [Concomitant]

REACTIONS (3)
  - ADRENAL INSUFFICIENCY [None]
  - DISEASE PROGRESSION [None]
  - PNEUMONIA [None]
